FAERS Safety Report 7730032-7 (Version None)
Quarter: 2011Q3

REPORT INFORMATION
  Report Type: 
  Country: None (occurrence: None)
  Receive Date: 20110906
  Receipt Date: 20110825
  Transmission Date: 20111222
  Serious: Yes (Hospitalization)
  Sender: FDA-Public Use
  Company Number: PHHY2011CH75741

PATIENT
  Age: 81 Year
  Sex: Female

DRUGS (3)
  1. EXELON [Suspect]
     Dosage: 9 MG, DAILY
     Route: 048
     Dates: end: 20110701
  2. EXELON [Suspect]
     Dosage: UNK UKN, UNK
     Route: 048
     Dates: start: 20110701
  3. EXELON [Suspect]
     Dosage: 3 MG, DAILY
     Route: 048

REACTIONS (5)
  - DISORIENTATION [None]
  - NAUSEA [None]
  - MALAISE [None]
  - VOMITING [None]
  - ABDOMINAL PAIN UPPER [None]
